FAERS Safety Report 6982441-1 (Version None)
Quarter: 2010Q3

REPORT INFORMATION
  Report Type: 
  Country: None (occurrence: None)
  Receive Date: 20100914
  Receipt Date: 20100120
  Transmission Date: 20110219
  Serious: No
  Sender: FDA-Public Use
  Company Number: US-PFIZER INC-2010009111

PATIENT
  Sex: Female
  Weight: 74.8 kg

DRUGS (7)
  1. LYRICA [Suspect]
     Indication: FIBROMYALGIA
     Dosage: UNK
     Route: 048
     Dates: start: 20090101
  2. PERCOCET [Concomitant]
     Dosage: UNK
  3. AROMASIN [Concomitant]
     Indication: MULTIPLE MYELOMA
     Dosage: UNK
  4. AROMASIN [Concomitant]
     Indication: BREAST CANCER
  5. XANAX [Concomitant]
     Dosage: UNK
  6. LISINOPRIL [Concomitant]
     Dosage: UNK
  7. CRESTOR [Concomitant]
     Dosage: UNK

REACTIONS (1)
  - PAIN [None]
